FAERS Safety Report 19366144 (Version 1)
Quarter: 2021Q2

REPORT INFORMATION
  Report Type: Spontaneous
  Country: IT (occurrence: IT)
  Receive Date: 20210602
  Receipt Date: 20210602
  Transmission Date: 20210717
  Serious: Yes (Other)
  Sender: FDA-Public Use
  Company Number: IT-TEVA-2021-IT-1917364

PATIENT
  Age: 67 Year
  Sex: Male

DRUGS (8)
  1. METHOTREXATE. [Suspect]
     Active Substance: METHOTREXATE
     Indication: PSORIASIS
     Route: 065
  2. ADALIMUMAB [Suspect]
     Active Substance: ADALIMUMAB
     Indication: PSORIASIS
     Route: 065
  3. ETANERCEPT [Suspect]
     Active Substance: ETANERCEPT
     Indication: PSORIASIS
     Route: 065
  4. IXEKIZUMAB [Suspect]
     Active Substance: IXEKIZUMAB
     Indication: ERYTHRODERMIC PSORIASIS
     Dosage: SCHEDULED TO RECEIVE 160MG AT WEEK 0 AND THEN 80MG EVERY 2 WEEKS FOR 12 WEEKS
     Route: 058
     Dates: start: 2018
  5. ETANERCEPT [Suspect]
     Active Substance: ETANERCEPT
     Indication: ERYTHRODERMIC PSORIASIS
  6. METHOTREXATE. [Suspect]
     Active Substance: METHOTREXATE
     Indication: ERYTHRODERMIC PSORIASIS
  7. IXEKIZUMAB [Suspect]
     Active Substance: IXEKIZUMAB
     Dosage: SCHEDULED TO RECEIVE 160MG AT WEEK 0 AND THEN 80MG EVERY 2 WEEKS FOR 12 WEEKS
     Route: 058
     Dates: start: 2018
  8. ADALIMUMAB [Suspect]
     Active Substance: ADALIMUMAB
     Indication: ERYTHRODERMIC PSORIASIS

REACTIONS (3)
  - Drug ineffective [Unknown]
  - Off label use [Unknown]
  - Erythrodermic psoriasis [Recovering/Resolving]

NARRATIVE: CASE EVENT DATE: 2018
